FAERS Safety Report 7909983-6 (Version None)
Quarter: 2011Q4

REPORT INFORMATION
  Report Type: 
  Country: None (occurrence: None)
  Receive Date: 20111111
  Receipt Date: 20111031
  Transmission Date: 20120403
  Serious: Yes (Hospitalization, Disabling, Other)
  Sender: FDA-Public Use
  Company Number: US-BAYER-201031214NA

PATIENT
  Age: 21 Year
  Sex: Female
  Weight: 54.422 kg

DRUGS (20)
  1. PROTONIX [Concomitant]
  2. YAZ [Suspect]
     Indication: PREMENSTRUAL SYNDROME
     Dosage: UNK
     Route: 048
     Dates: start: 20040101, end: 20091101
  3. YAZ [Suspect]
     Indication: MENSTRUAL CYCLE MANAGEMENT
  4. BROMPHENIRAMINE MALEATE + PSEUDOEPHEDRINE HCL [Concomitant]
  5. PREDNISONE TAB [Concomitant]
  6. SARAFEM [Concomitant]
  7. MICROGESTIN FE 1.5/30 [Concomitant]
  8. CLARINEX [Concomitant]
  9. SARAFEM [Concomitant]
  10. HYCODAN [Concomitant]
  11. DESOGEN [Concomitant]
  12. ANUSOL [Concomitant]
  13. KARIVA [Concomitant]
  14. NEXIUM [Concomitant]
     Indication: DYSPEPSIA
  15. ZYRTEC [Concomitant]
  16. PERI-COLACE [Concomitant]
  17. MIRCETTE [Concomitant]
     Dosage: UNK UNK, QS
  18. VICODIN [Concomitant]
  19. PROZAC [Concomitant]
  20. REGLAN [Concomitant]

REACTIONS (5)
  - CHOLECYSTITIS [None]
  - VOMITING [None]
  - VOMITING PSYCHOGENIC [None]
  - PAIN [None]
  - DYSPNOEA [None]
